FAERS Safety Report 10190830 (Version 1)
Quarter: 2014Q2

REPORT INFORMATION
  Report Type: Other
  Country: ZA (occurrence: ZA)
  Receive Date: 20140523
  Receipt Date: 20140523
  Transmission Date: 20141212
  Serious: Yes (Hospitalization)
  Sender: FDA-Public Use
  Company Number: ZA-BRISTOL-MYERS SQUIBB COMPANY-20782470

PATIENT
  Age: 1 Day
  Sex: Female
  Weight: 2.17 kg

DRUGS (5)
  1. EFAVIRENZ TABS [Suspect]
     Route: 064
  2. MORPHINE SULFATE [Suspect]
     Route: 064
  3. DIACETYLMORPHINE [Suspect]
     Route: 064
  4. METHAMPHETAMINE HCL [Suspect]
     Route: 064
  5. RITONAVIR [Suspect]
     Route: 064

REACTIONS (4)
  - Drug withdrawal syndrome neonatal [Unknown]
  - Foetal exposure during pregnancy [Unknown]
  - Exposure during breast feeding [Unknown]
  - Growth retardation [None]
